FAERS Safety Report 8585943-X (Version None)
Quarter: 2012Q3

REPORT INFORMATION
  Report Type: 
  Country: None (occurrence: None)
  Receive Date: 20120810
  Receipt Date: 20120806
  Transmission Date: 20120928
  Serious: Yes (Other)
  Sender: FDA-Public Use
  Company Number: US-PFIZER INC-2012165188

PATIENT
  Age: 66 Year
  Sex: Female
  Weight: 76.19 kg

DRUGS (7)
  1. GABAPENTIN [Suspect]
     Indication: RESTLESS LEGS SYNDROME
  2. GABAPENTIN [Suspect]
     Indication: LIMB DISCOMFORT
     Dosage: 300 MG, 3X/DAY
  3. AVAPRO [Concomitant]
     Indication: BLOOD PRESSURE ABNORMAL
     Dosage: 150 MG, DAILY
     Route: 048
  4. GABAPENTIN [Suspect]
     Indication: PAIN IN EXTREMITY
  5. NEURONTIN [Suspect]
     Dosage: UNK
  6. LYRICA [Suspect]
  7. PLAVIX [Concomitant]
     Indication: BLOOD CHOLESTEROL INCREASED
     Dosage: 75 MG, DAILY
     Route: 048

REACTIONS (5)
  - CEREBROVASCULAR ACCIDENT [None]
  - GAIT DISTURBANCE [None]
  - DRUG ADMINISTRATION ERROR [None]
  - DIABETES MELLITUS [None]
  - ACTIVITIES OF DAILY LIVING IMPAIRED [None]
